FAERS Safety Report 9523901 (Version 1)
Quarter: 2013Q1

REPORT INFORMATION
  Report Type: Spontaneous
  Country: US (occurrence: None)
  Receive Date: 20130305
  Receipt Date: 20130305
  Transmission Date: 20140127
  Serious: Yes (Other)
  Sender: FDA-Public Use
  Company Number: 163-21880-12012477

PATIENT
  Age: 59 Year
  Sex: Male

DRUGS (9)
  1. REVLIMID (LENALIDOMIDE) (25 MILLIGRAM, CAPSULES) [Suspect]
     Indication: PLASMA CELL MYELOMA
     Dosage: 25 MG, 1 IN 1 D, PO
     Route: 048
     Dates: start: 201109
  2. G-CSF (GRANULOCYTE COLONY STIMULATING FACTOR) [Concomitant]
  3. DEXAMETHASONE (DEXAMETHASONE) (UNKNOWN) [Concomitant]
  4. IGAK (UNKNOWN) [Concomitant]
  5. NEURONTIN (GABAPENTIN) (UNKNOWN) [Concomitant]
  6. TEGRETOL (CARBAMAZEPINE) (UNKNOWN) [Concomitant]
  7. PAXIL (PAROXETINE HYDROCHLORIDE) (UNKNOWN) [Concomitant]
  8. LYRICA (PREGABALIN) (UNKNOWN) [Concomitant]
  9. PRAVASTATIN (PRAVASTATIN) (UNKNOWN) [Concomitant]

REACTIONS (2)
  - Neutropenia [None]
  - Drug intolerance [None]
